FAERS Safety Report 14553279 (Version 1)
Quarter: 2018Q1

REPORT INFORMATION
  Report Type: Spontaneous
  Country: US (occurrence: US)
  Receive Date: 20180212
  Receipt Date: 20180212
  Transmission Date: 20180509
  Serious: Yes (Disabling, Other)
  Sender: FDA-Public Use
  Company Number: None

PATIENT
  Sex: Male
  Weight: 85.05 kg

DRUGS (1)
  1. CLOPIDOGREL [Suspect]
     Active Substance: CLOPIDOGREL BISULFATE
     Indication: MYOCARDIAL INFARCTION
     Dosage: ?          QUANTITY:30 CAPSULE(S);?
     Route: 048
     Dates: start: 20171202, end: 20171231

REACTIONS (5)
  - Product use issue [None]
  - Drug dispensing error [None]
  - Wrong drug administered [None]
  - Product label on wrong product [None]
  - Osteonecrosis [None]

NARRATIVE: CASE EVENT DATE: 20171202
